FAERS Safety Report 6134550-7 (Version None)
Quarter: 2009Q1

REPORT INFORMATION
  Report Type: 
  Country: None (occurrence: None)
  Receive Date: 20090327
  Receipt Date: 20090318
  Transmission Date: 20090719
  Serious: Yes (Other)
  Sender: FDA-Public Use
  Company Number: AT-BRISTOL-MYERS SQUIBB COMPANY-14562656

PATIENT
  Age: 46 Year
  Sex: Male

DRUGS (1)
  1. METFORMIN HCL [Suspect]
     Dosage: FREQUENCY: IN THE EVENING (SINCE 1 WEEK)
     Route: 048
     Dates: start: 20090201

REACTIONS (2)
  - FATIGUE [None]
  - HANGOVER [None]
